FAERS Safety Report 7152415-9 (Version None)
Quarter: 2010Q4

REPORT INFORMATION
  Report Type: 
  Country: None (occurrence: None)
  Receive Date: 20101208
  Receipt Date: 20101208
  Transmission Date: 20110411
  Serious: Yes (Hospitalization)
  Sender: FDA-Public Use
  Company Number: None

PATIENT
  Age: 74 Year
  Sex: Female
  Weight: 35.8342 kg

DRUGS (1)
  1. MOXIFLOXACIN [Suspect]
     Indication: GASTROENTERITIS
     Dosage: 400 MG EVERYDAY PO
     Route: 048
     Dates: start: 20101126, end: 20101128

REACTIONS (2)
  - ANGIOEDEMA [None]
  - URTICARIA [None]
